FAERS Safety Report 7748147-6 (Version None)
Quarter: 2011Q3

REPORT INFORMATION
  Report Type: 
  Country: None (occurrence: None)
  Receive Date: 20110913
  Receipt Date: 20110829
  Transmission Date: 20111222
  Serious: Yes (Hospitalization)
  Sender: FDA-Public Use
  Company Number: NL-WATSON-2011-14534

PATIENT
  Age: 6 Month
  Sex: Male

DRUGS (1)
  1. PROPRANOLOL [Suspect]
     Indication: HAEMANGIOMA
     Dosage: 1.8 - 4 MG/KG PER DAY
     Route: 048

REACTIONS (5)
  - VIRAL INFECTION [None]
  - DIARRHOEA [None]
  - BRONCHIAL HYPERREACTIVITY [None]
  - POOR QUALITY SLEEP [None]
  - PERIPHERAL COLDNESS [None]
